FAERS Safety Report 5482838-5 (Version None)
Quarter: 2007Q4

REPORT INFORMATION
  Report Type: 
  Country: None (occurrence: None)
  Receive Date: 20071011
  Receipt Date: 20071001
  Transmission Date: 20080405
  Serious: Yes (Hospitalization)
  Sender: FDA-Public Use
  Company Number: IT-PFIZER INC-2007083008

PATIENT
  Sex: Female

DRUGS (1)
  1. BASSADO [Suspect]
     Indication: DERMATITIS ACNEIFORM
     Dosage: DAILY DOSE:100MG
     Route: 048
     Dates: start: 20060317, end: 20060321

REACTIONS (9)
  - EROSIVE OESOPHAGITIS [None]
  - IATROGENIC INJURY [None]
  - MUSCULOSKELETAL PAIN [None]
  - NAUSEA [None]
  - NECK PAIN [None]
  - OESOPHAGITIS [None]
  - PAIN [None]
  - PHARYNGOLARYNGEAL PAIN [None]
  - RETCHING [None]
